FAERS Safety Report 9441745 (Version 2)
Quarter: 2015Q4

REPORT INFORMATION
  Report Type: Report from Study
  Country: US (occurrence: US)
  Receive Date: 20130806
  Receipt Date: 20151001
  Transmission Date: 20160305
  Serious: Yes (Hospitalization)
  Sender: FDA-Public Use
  Company Number: US-ROCHE-1254666

PATIENT
  Age: 49 Year
  Sex: Male
  Weight: 115.77 kg

DRUGS (21)
  1. GEMFIBROZIL. [Concomitant]
     Active Substance: GEMFIBROZIL
     Route: 065
  2. ADVAIR HFA [Concomitant]
     Active Substance: FLUTICASONE PROPIONATE\SALMETEROL XINAFOATE
     Dosage: UNKNOWN
     Route: 065
  3. CLARITIN [Concomitant]
     Active Substance: LORATADINE
     Route: 048
  4. ZOLPIDEM TARTRATE. [Concomitant]
     Active Substance: ZOLPIDEM TARTRATE
     Dosage: 10 PRN
     Route: 048
  5. FLUOXETINE [Concomitant]
     Active Substance: FLUOXETINE HYDROCHLORIDE
     Dosage: 20 MG EVERY DAY
     Route: 048
     Dates: start: 20121115
  6. DALIRESP [Concomitant]
     Active Substance: ROFLUMILAST
     Dosage: 500 EVERY DAY
     Route: 065
     Dates: start: 20120404
  7. PREDNISONE. [Concomitant]
     Active Substance: PREDNISONE
     Dosage: 20 MG BID X 5 DAYS
     Route: 065
  8. SPIRIVA [Concomitant]
     Active Substance: TIOTROPIUM BROMIDE MONOHYDRATE
     Dosage: AS DIRECTED
     Route: 048
  9. NAPROSYN [Suspect]
     Active Substance: NAPROXEN
     Indication: PRODUCT USED FOR UNKNOWN INDICATION
     Dosage: 500 TWICE A DAY
     Route: 065
  10. GUAIFENESIN. [Concomitant]
     Active Substance: GUAIFENESIN
     Route: 065
  11. ZITHROMAX [Concomitant]
     Active Substance: AZITHROMYCIN DIHYDRATE
     Route: 048
  12. LOSARTAN. [Concomitant]
     Active Substance: LOSARTAN
     Route: 065
  13. ALBUTEROL. [Concomitant]
     Active Substance: ALBUTEROL
     Dosage: AS REQUIRED
     Route: 065
  14. XOLAIR [Suspect]
     Active Substance: OMALIZUMAB
     Indication: ASTHMA
     Dosage: 300 MG SQ Q 4 WEEKS
     Route: 058
  15. XOLAIR [Suspect]
     Active Substance: OMALIZUMAB
     Route: 058
  16. FLONASE (UNITED STATES) [Concomitant]
  17. LIPITOR [Concomitant]
     Active Substance: ATORVASTATIN CALCIUM
     Dosage: 20 EVERY DAY
     Route: 065
  18. INDOMETHACIN. [Concomitant]
     Active Substance: INDOMETHACIN
     Dosage: AS REQUIRED
     Route: 048
  19. QVAR [Concomitant]
     Active Substance: BECLOMETHASONE DIPROPIONATE
     Route: 065
  20. ALLOPURINOL. [Concomitant]
     Active Substance: ALLOPURINOL
     Dosage: 100 AS PER NEEDED
     Route: 048
  21. PREDNISONE. [Concomitant]
     Active Substance: PREDNISONE
     Route: 065

REACTIONS (32)
  - Lipids increased [Unknown]
  - Pain in extremity [Unknown]
  - Cough [Unknown]
  - Rhonchi [Unknown]
  - Sputum discoloured [Unknown]
  - Oedema [Unknown]
  - Oropharyngeal pain [Unknown]
  - Epistaxis [Unknown]
  - Dyspnoea [Unknown]
  - Blood triglycerides increased [Unknown]
  - Chronic obstructive pulmonary disease [Unknown]
  - Gouty arthritis [Unknown]
  - Breath sounds [Unknown]
  - Weight increased [Unknown]
  - Blood glucose increased [Unknown]
  - Pallor [Unknown]
  - Breath sounds abnormal [Unknown]
  - Gout [Unknown]
  - Nasal pruritus [Unknown]
  - Blood pressure increased [Unknown]
  - Lung neoplasm [Unknown]
  - Nasal congestion [Unknown]
  - Muscular weakness [Unknown]
  - Myalgia [Unknown]
  - Diarrhoea [Unknown]
  - Tinnitus [Unknown]
  - Swelling [Unknown]
  - Lung infiltration [Unknown]
  - Headache [Unknown]
  - Malaise [Unknown]
  - Hemiparesis [Unknown]
  - Sneezing [Unknown]

NARRATIVE: CASE EVENT DATE: 20120215
